FAERS Safety Report 5882759-X (Version None)
Quarter: 2008Q3

REPORT INFORMATION
  Report Type: 
  Country: None (occurrence: None)
  Receive Date: 20080913
  Receipt Date: 20080813
  Transmission Date: 20090109
  Serious: No
  Sender: FDA-Public Use
  Company Number: US-ABBOTT-08P-163-0471077-00

PATIENT
  Sex: Female
  Weight: 53.118 kg

DRUGS (5)
  1. HUMIRA [Suspect]
     Indication: RHEUMATOID ARTHRITIS
     Route: 050
     Dates: start: 20080701
  2. METHOTREXATE [Concomitant]
     Indication: RHEUMATOID ARTHRITIS
     Dosage: 2.5 MG-8 TABS PER WEEK
     Route: 048
     Dates: start: 20080101
  3. PREDNISONE TAB [Concomitant]
     Indication: RHEUMATOID ARTHRITIS
     Dosage: 10 MG DAILY
     Route: 048
     Dates: start: 20080101
  4. ACETYLSALICYLIC ACID SRT [Concomitant]
     Indication: DRUG USE FOR UNKNOWN INDICATION
     Dosage: 81 MG DAILY
     Route: 048
     Dates: start: 20060101
  5. AMLODIPINE [Concomitant]
     Indication: HYPERTENSION
     Dosage: 5 MG DAILY
     Route: 048
     Dates: start: 20060101

REACTIONS (1)
  - ACCIDENTAL EXPOSURE [None]
